FAERS Safety Report 6334862-8 (Version None)
Quarter: 2009Q3

REPORT INFORMATION
  Report Type: 
  Country: None (occurrence: None)
  Receive Date: 20090827
  Receipt Date: 20090814
  Transmission Date: 20100115
  Serious: Yes (Other)
  Sender: FDA-Public Use
  Company Number: PAR_03023_2009

PATIENT
  Age: 27 Year
  Sex: Male
  Weight: 60.782 kg

DRUGS (1)
  1. MEGACE ES [Suspect]
     Indication: WEIGHT DECREASED
     Dosage: 625 MG ORAL
     Route: 048
     Dates: start: 20090401, end: 20090515

REACTIONS (7)
  - BLOOD CORTISOL DECREASED [None]
  - CUSHINGOID [None]
  - DISEASE RECURRENCE [None]
  - ERECTILE DYSFUNCTION [None]
  - HYPERTENSION [None]
  - RASH PRURITIC [None]
  - THERAPEUTIC RESPONSE UNEXPECTED [None]
